FAERS Safety Report 23368747 (Version 1)
Quarter: 2024Q1

REPORT INFORMATION
  Report Type: Spontaneous
  Country: US (occurrence: US)
  Receive Date: 20240105
  Receipt Date: 20240105
  Transmission Date: 20240409
  Serious: No
  Sender: FDA-Public Use
  Company Number: US-HALEON-USCH2023067432

PATIENT
  Age: 51 Year
  Sex: Female

DRUGS (1)
  1. NICODERM CQ [Suspect]
     Active Substance: NICOTINE
     Indication: Product used for unknown indication
     Dosage: 1 DF
     Dates: start: 20231226, end: 20231228

REACTIONS (2)
  - Skin irritation [Unknown]
  - Erythema [Unknown]

NARRATIVE: CASE EVENT DATE: 20231226
